FAERS Safety Report 7528667-X (Version None)
Quarter: 2011Q2

REPORT INFORMATION
  Report Type: 
  Country: None (occurrence: None)
  Receive Date: 20110607
  Receipt Date: 20040729
  Transmission Date: 20111010
  Serious: Yes (Death)
  Sender: FDA-Public Use
  Company Number: PHNR2004AU01198

PATIENT
  Sex: Female

DRUGS (1)
  1. CLOZARIL [Suspect]
     Dosage: 150 MG, QD
     Dates: start: 20040206

REACTIONS (3)
  - CEREBROVASCULAR ACCIDENT [None]
  - CARDIAC ARREST [None]
  - HYPERTENSION [None]
